FAERS Safety Report 10237749 (Version 27)
Quarter: 2016Q3

REPORT INFORMATION
  Report Type: Report from Study
  Country: TR (occurrence: TR)
  Receive Date: 20140616
  Receipt Date: 20160906
  Transmission Date: 20161109
  Serious: Yes (Hospitalization)
  Sender: FDA-Public Use
  Company Number: TR-ROCHE-1404346

PATIENT
  Age: 69 Year
  Sex: Female
  Weight: 55.3 kg

DRUGS (96)
  1. OBINUTUZUMAB [Suspect]
     Active Substance: OBINUTUZUMAB
     Dosage: INFUSION RATE: 100 (FROM 10:00 TO 13:30 HOURS)
     Route: 042
     Dates: start: 20140304, end: 20140304
  2. OBINUTUZUMAB [Suspect]
     Active Substance: OBINUTUZUMAB
     Dosage: INFUSION RATE: 100 (FROM 10:00 TO 13:30 HOURS)
     Route: 042
     Dates: start: 20140707, end: 20140707
  3. BENDAMUSTINE [Suspect]
     Active Substance: BENDAMUSTINE
     Dosage: INFUSION RATE: 270 (FROM 10:00 TO 11:00 HOURS)
     Route: 042
     Dates: start: 20140402, end: 20140402
  4. BENDAMUSTINE [Suspect]
     Active Substance: BENDAMUSTINE
     Dosage: INFUSION RATE: 136 (FROM 13:30 TO 14:30 HOURS)
     Route: 042
     Dates: start: 20140708, end: 20140708
  5. DEKORT [Concomitant]
     Active Substance: DEXAMETHASONE
     Route: 042
     Dates: start: 20140429, end: 20140429
  6. AVIL [Concomitant]
     Active Substance: PHENIRAMINE
     Route: 042
     Dates: start: 20140429, end: 20140430
  7. RANITIDINE. [Concomitant]
     Active Substance: RANITIDINE
     Route: 042
     Dates: start: 20140401, end: 20140401
  8. UROGRAFIN [Concomitant]
     Active Substance: DIATRIZOATE MEGLUMINE\DIATRIZOATE SODIUM
     Route: 048
     Dates: start: 20151223, end: 20151223
  9. OBINUTUZUMAB [Suspect]
     Active Substance: OBINUTUZUMAB
     Indication: CHRONIC LYMPHOCYTIC LEUKAEMIA
     Dosage: INFUSION RATE: 6.25 (FROM 12:00 TO 15:00 HOURS) ACTUAL DOSE GIVEN 25MG -REDUCED DUE TO INFUSION REAC
     Route: 042
     Dates: start: 20140204
  10. OBINUTUZUMAB [Suspect]
     Active Substance: OBINUTUZUMAB
     Dosage: INFUSION RATE: 50 (FROM 11:00 TO 15:00 HOURS)
     Route: 042
     Dates: start: 20140205, end: 20140205
  11. BENDAMUSTINE [Suspect]
     Active Substance: BENDAMUSTINE
     Dosage: INFUSION RATE: 138 (FROM 13:30 TO 14:30 HOURS)
     Route: 042
     Dates: start: 20140304, end: 20140304
  12. BENDAMUSTINE [Suspect]
     Active Substance: BENDAMUSTINE
     Dosage: INFUSION RATE: 138 (FROM 13:30 TO 14:30 HOURS)
     Route: 042
     Dates: start: 20140305, end: 20140305
  13. GRANISETRON [Concomitant]
     Active Substance: GRANISETRON
     Route: 042
     Dates: start: 20140211, end: 20140211
  14. GRANISETRON [Concomitant]
     Active Substance: GRANISETRON
     Route: 042
     Dates: start: 20140304, end: 20140305
  15. TRAMADOL HYDROCHLORIDE. [Concomitant]
     Active Substance: TRAMADOL HYDROCHLORIDE
     Route: 042
     Dates: start: 20140616, end: 20140616
  16. BENDAMUSTINE [Suspect]
     Active Substance: BENDAMUSTINE
     Dosage: INFUSION RATE: 136 (FROM 13:30 TO 14:30 HOURS)
     Route: 042
     Dates: start: 20140429, end: 20140429
  17. BENDAMUSTINE [Suspect]
     Active Substance: BENDAMUSTINE
     Dosage: INFUSION RATE: 136 (FROM 13:30 TO 14:30 HOURS)
     Route: 042
     Dates: start: 20140707, end: 20140707
  18. DEKORT [Concomitant]
     Active Substance: DEXAMETHASONE
     Route: 042
     Dates: start: 20140211, end: 20140211
  19. DEKORT [Concomitant]
     Active Substance: DEXAMETHASONE
     Route: 042
     Dates: start: 20140708, end: 20140708
  20. RANITIDINE. [Concomitant]
     Active Substance: RANITIDINE
     Route: 042
     Dates: start: 20140205, end: 20140205
  21. RANITIDINE. [Concomitant]
     Active Substance: RANITIDINE
     Route: 042
     Dates: start: 20140218, end: 20140218
  22. RANITIDINE. [Concomitant]
     Active Substance: RANITIDINE
     Route: 042
     Dates: start: 20140304, end: 20140304
  23. GRANISETRON [Concomitant]
     Active Substance: GRANISETRON
     Route: 042
     Dates: start: 20140707, end: 20140707
  24. OMNIPAQUE [Concomitant]
     Active Substance: IOHEXOL
     Dosage: STRENGTH: 350MG/ML
     Route: 042
     Dates: start: 20140929, end: 20140929
  25. OMNIPAQUE [Concomitant]
     Active Substance: IOHEXOL
     Dosage: STRENGTH: 350MG/ML
     Route: 042
     Dates: start: 20150709, end: 20150709
  26. UROGRAFIN [Concomitant]
     Active Substance: DIATRIZOATE MEGLUMINE\DIATRIZOATE SODIUM
     Route: 048
     Dates: start: 20150709, end: 20150709
  27. UROGRAFIN [Concomitant]
     Active Substance: DIATRIZOATE MEGLUMINE\DIATRIZOATE SODIUM
     Route: 048
     Dates: start: 20160113, end: 20160113
  28. OBINUTUZUMAB [Suspect]
     Active Substance: OBINUTUZUMAB
     Dosage: INFUSION RATE: 100 (FROM 10:00 TO 13:30 HOURS)
     Route: 042
     Dates: start: 20140429, end: 20140429
  29. DEKORT [Concomitant]
     Active Substance: DEXAMETHASONE
     Route: 042
     Dates: start: 20140305, end: 20140305
  30. DEKORT [Concomitant]
     Active Substance: DEXAMETHASONE
     Route: 042
     Dates: start: 20140528, end: 20140528
  31. AVIL [Concomitant]
     Active Substance: PHENIRAMINE
     Route: 042
     Dates: start: 20140211, end: 20140211
  32. RANITIDINE. [Concomitant]
     Active Substance: RANITIDINE
     Route: 042
     Dates: start: 20140402, end: 20140402
  33. RANITIDINE. [Concomitant]
     Active Substance: RANITIDINE
     Route: 042
     Dates: start: 20140430, end: 20140430
  34. RANITIDINE. [Concomitant]
     Active Substance: RANITIDINE
     Route: 042
     Dates: start: 20140528, end: 20140528
  35. RANITIDINE. [Concomitant]
     Active Substance: RANITIDINE
     Route: 042
     Dates: start: 20140707, end: 20140708
  36. GRANISETRON [Concomitant]
     Active Substance: GRANISETRON
     Route: 042
     Dates: start: 20140429, end: 20140430
  37. GRANISETRON [Concomitant]
     Active Substance: GRANISETRON
     Route: 042
     Dates: start: 20140527, end: 20140528
  38. OMNIPAQUE [Concomitant]
     Active Substance: IOHEXOL
     Route: 042
     Dates: start: 20140808, end: 20140808
  39. BENDAMUSTINE [Suspect]
     Active Substance: BENDAMUSTINE
     Dosage: INFUSION RATE: 135 (FROM 15:00 TO 16:00 HOURS)
     Route: 042
     Dates: start: 20140205, end: 20140205
  40. BENDAMUSTINE [Suspect]
     Active Substance: BENDAMUSTINE
     Dosage: INFUSION RATE: 136 (FROM 08:30 TO 09:30 HOURS)
     Route: 042
     Dates: start: 20140430, end: 20140430
  41. DEKORT [Concomitant]
     Active Substance: DEXAMETHASONE
     Route: 042
     Dates: start: 20140527, end: 20140527
  42. AVIL [Concomitant]
     Active Substance: PHENIRAMINE
     Indication: PROPHYLAXIS
     Route: 042
     Dates: start: 20140204, end: 20140205
  43. RANITIDINE. [Concomitant]
     Active Substance: RANITIDINE
     Indication: PROPHYLAXIS
     Route: 042
     Dates: start: 20140204, end: 20140204
  44. RANITIDINE. [Concomitant]
     Active Substance: RANITIDINE
     Route: 042
     Dates: start: 20140527, end: 20140527
  45. GRANISETRON [Concomitant]
     Active Substance: GRANISETRON
     Route: 042
     Dates: start: 20140401, end: 20140402
  46. DICLOFENAC SODIUM. [Concomitant]
     Active Substance: DICLOFENAC SODIUM
     Indication: PROPHYLAXIS
     Route: 048
     Dates: start: 20140204, end: 20140313
  47. ALLOPURINOL. [Concomitant]
     Active Substance: ALLOPURINOL
     Indication: PROPHYLAXIS
     Route: 048
     Dates: start: 20140204, end: 20140213
  48. METOKLOPRAMID HIDROKLORUR [Concomitant]
     Indication: PROPHYLAXIS
     Route: 048
     Dates: start: 20140708, end: 20140708
  49. OMNIPAQUE [Concomitant]
     Active Substance: IOHEXOL
     Route: 042
     Dates: start: 20140502, end: 20140502
  50. OMNIPAQUE [Concomitant]
     Active Substance: IOHEXOL
     Dosage: STRENGTH: 350MG/ML
     Route: 042
     Dates: start: 20150422, end: 20150422
  51. OMNIPAQUE [Concomitant]
     Active Substance: IOHEXOL
     Dosage: STRENGTH: 350MG/ML
     Route: 042
     Dates: start: 20151223, end: 20151223
  52. UROGRAFIN [Concomitant]
     Active Substance: DIATRIZOATE MEGLUMINE\DIATRIZOATE SODIUM
     Route: 048
     Dates: start: 20140808, end: 20140808
  53. UROGRAFIN [Concomitant]
     Active Substance: DIATRIZOATE MEGLUMINE\DIATRIZOATE SODIUM
     Route: 048
     Dates: start: 20140929, end: 20140929
  54. OTRIVINE [Concomitant]
     Active Substance: XYLOMETAZOLINE HYDROCHLORIDE
     Route: 050
     Dates: start: 20141111, end: 20141118
  55. OBINUTUZUMAB [Suspect]
     Active Substance: OBINUTUZUMAB
     Dosage: INFUSION RATE: 100 (FROM 09:35 TO 13:05 HOURS)
     Route: 042
     Dates: start: 20140211, end: 20140211
  56. OBINUTUZUMAB [Suspect]
     Active Substance: OBINUTUZUMAB
     Dosage: INFUSION RATE: 100 (FROM 10:00 TO 13:30 HOURS)
     Route: 042
     Dates: start: 20140527, end: 20140527
  57. BENDAMUSTINE [Suspect]
     Active Substance: BENDAMUSTINE
     Dosage: INFUSION RATE: 270 (FROM 13:30 TO 14:30 HOURS)
     Route: 042
     Dates: start: 20140401, end: 20140401
  58. BENDAMUSTINE [Suspect]
     Active Substance: BENDAMUSTINE
     Dosage: INFUSION RATE: 136 (FROM 13:30 TO 14:30 HOURS)
     Route: 042
     Dates: start: 20140528, end: 20140528
  59. DEKORT [Concomitant]
     Active Substance: DEXAMETHASONE
     Indication: PROPHYLAXIS
     Route: 042
     Dates: start: 20140204, end: 20140204
  60. DEKORT [Concomitant]
     Active Substance: DEXAMETHASONE
     Route: 042
     Dates: start: 20140218, end: 20140218
  61. DEKORT [Concomitant]
     Active Substance: DEXAMETHASONE
     Route: 042
     Dates: start: 20140402, end: 20140402
  62. DEKORT [Concomitant]
     Active Substance: DEXAMETHASONE
     Route: 042
     Dates: start: 20140430, end: 20140430
  63. AVIL [Concomitant]
     Active Substance: PHENIRAMINE
     Route: 042
     Dates: start: 20150730, end: 20150730
  64. RANITIDINE. [Concomitant]
     Active Substance: RANITIDINE
     Route: 042
     Dates: start: 20140211, end: 20140211
  65. RANITIDINE. [Concomitant]
     Active Substance: RANITIDINE
     Route: 042
     Dates: start: 20140305, end: 20140305
  66. GRANISETRON [Concomitant]
     Active Substance: GRANISETRON
     Indication: PROPHYLAXIS
     Route: 042
     Dates: start: 20140204, end: 20140205
  67. DUPHALAC (TURKEY) [Concomitant]
     Route: 048
     Dates: start: 20140207, end: 20140210
  68. OMNIPAQUE [Concomitant]
     Active Substance: IOHEXOL
     Dosage: STRENGTH: 350MG/ML
     Route: 042
     Dates: start: 20160113, end: 20160113
  69. UROGRAFIN [Concomitant]
     Active Substance: DIATRIZOATE MEGLUMINE\DIATRIZOATE SODIUM
     Route: 048
     Dates: start: 20150422, end: 20150422
  70. CIPRO [Concomitant]
     Active Substance: CIPROFLOXACIN HYDROCHLORIDE
     Route: 048
     Dates: start: 20141111, end: 20141125
  71. TRAMADOL HYDROCHLORIDE. [Concomitant]
     Active Substance: TRAMADOL HYDROCHLORIDE
     Route: 042
     Dates: start: 20140622, end: 20140622
  72. CONTRAMAL [Concomitant]
     Active Substance: TRAMADOL HYDROCHLORIDE
     Dosage: CONTRAMAL RETARD
     Route: 042
     Dates: start: 20150208, end: 20150208
  73. MIACALCIC [Concomitant]
     Active Substance: CALCITONIN SALMON
     Indication: OSTEOPOROSIS
     Route: 048
     Dates: start: 20150618, end: 20150621
  74. OBINUTUZUMAB [Suspect]
     Active Substance: OBINUTUZUMAB
     Dosage: INFUSION RATE: 100 (FROM 10:00 TO 13:30 HOURS)
     Route: 042
     Dates: start: 20140218, end: 20140218
  75. OBINUTUZUMAB [Suspect]
     Active Substance: OBINUTUZUMAB
     Dosage: INFUSION RATE: 100 (FROM 10:00 TO 13:30 HOURS)
     Route: 042
     Dates: start: 20140401, end: 20140401
  76. BENDAMUSTINE [Suspect]
     Active Substance: BENDAMUSTINE
     Dosage: INFUSION RATE: 136 (FROM 13:30 TO 14:30 HOURS)
     Route: 042
     Dates: start: 20140527, end: 20140527
  77. DEKORT [Concomitant]
     Active Substance: DEXAMETHASONE
     Route: 042
     Dates: start: 20140304, end: 20140304
  78. DEKORT [Concomitant]
     Active Substance: DEXAMETHASONE
     Route: 042
     Dates: start: 20140401, end: 20140401
  79. DEKORT [Concomitant]
     Active Substance: DEXAMETHASONE
     Route: 042
     Dates: start: 20140707, end: 20140707
  80. AVIL [Concomitant]
     Active Substance: PHENIRAMINE
     Route: 042
     Dates: start: 20140401, end: 20140402
  81. RANITIDINE. [Concomitant]
     Active Substance: RANITIDINE
     Route: 042
     Dates: start: 20140429, end: 20140429
  82. METHYLPREDNISOLONE ACEPONATE [Concomitant]
     Active Substance: METHYLPREDNISOLONE ACEPONATE
     Route: 061
     Dates: start: 20140318, end: 20140415
  83. UROGRAFIN [Concomitant]
     Active Substance: DIATRIZOATE MEGLUMINE\DIATRIZOATE SODIUM
     Route: 048
     Dates: start: 20140502, end: 20140502
  84. UROGRAFIN [Concomitant]
     Active Substance: DIATRIZOATE MEGLUMINE\DIATRIZOATE SODIUM
     Route: 048
     Dates: start: 20151005, end: 20151005
  85. MONUROL [Concomitant]
     Active Substance: FOSFOMYCIN TROMETHAMINE
     Route: 048
     Dates: start: 20141111, end: 20141112
  86. IG VENA [Concomitant]
     Active Substance: HUMAN IMMUNOGLOBULIN G
     Route: 042
     Dates: start: 20150611, end: 20150611
  87. BENDAMUSTINE [Suspect]
     Active Substance: BENDAMUSTINE
     Indication: CHRONIC LYMPHOCYTIC LEUKAEMIA
     Dosage: INFUSION RATE: 135 (FROM 15:00 TO 16:00 HOURS)?LAST DOSE PRIOR TO PNEUMONIA WAS ON 30/APR/2014. LAST
     Route: 042
     Dates: start: 20140204, end: 20140204
  88. DEKORT [Concomitant]
     Active Substance: DEXAMETHASONE
     Route: 042
     Dates: start: 20140205, end: 20140205
  89. AVIL [Concomitant]
     Active Substance: PHENIRAMINE
     Route: 042
     Dates: start: 20140218, end: 20140218
  90. AVIL [Concomitant]
     Active Substance: PHENIRAMINE
     Route: 042
     Dates: start: 20140304, end: 20140305
  91. AVIL [Concomitant]
     Active Substance: PHENIRAMINE
     Route: 042
     Dates: start: 20140527, end: 20140528
  92. AVIL [Concomitant]
     Active Substance: PHENIRAMINE
     Route: 042
     Dates: start: 20140707, end: 20140708
  93. GRANISETRON [Concomitant]
     Active Substance: GRANISETRON
     Route: 042
     Dates: start: 20140218, end: 20140218
  94. OMNIPAQUE [Concomitant]
     Active Substance: IOHEXOL
     Dosage: STRENGTH: 350MG/ML
     Route: 042
     Dates: start: 20150126, end: 20150126
  95. OMNIPAQUE [Concomitant]
     Active Substance: IOHEXOL
     Dosage: STRENGTH: 350MG/ML
     Route: 042
     Dates: start: 20151005, end: 20151005
  96. UROGRAFIN [Concomitant]
     Active Substance: DIATRIZOATE MEGLUMINE\DIATRIZOATE SODIUM
     Route: 048
     Dates: start: 20150126, end: 20150126

REACTIONS (2)
  - Pneumonia [Recovered/Resolved]
  - Febrile neutropenia [Recovered/Resolved]

NARRATIVE: CASE EVENT DATE: 20140510
